FAERS Safety Report 8139642-9 (Version None)
Quarter: 2012Q1

REPORT INFORMATION
  Report Type: 
  Country: None (occurrence: None)
  Receive Date: 20120215
  Receipt Date: 20120208
  Transmission Date: 20120608
  Serious: Yes (Other)
  Sender: FDA-Public Use
  Company Number: PHHY2012FR012057

PATIENT
  Age: 81 Year
  Sex: Female

DRUGS (2)
  1. ZOLEDRONOC ACID [Suspect]
     Indication: OSTEOPOROSIS
     Dosage: 5 MG, YEARLY
     Route: 042
     Dates: start: 20080101
  2. CORTICOSTEROID NOS [Concomitant]
     Dosage: 40 MG, ONCE/SINGLE
     Dates: start: 20110201

REACTIONS (4)
  - GRANULOMA [None]
  - PRIMARY SEQUESTRUM [None]
  - OSTEONECROSIS OF JAW [None]
  - IMPAIRED HEALING [None]
